FAERS Safety Report 4664055-1 (Version None)
Quarter: 2005Q2

REPORT INFORMATION
  Report Type: 
  Country: None (occurrence: None)
  Receive Date: 20050516
  Receipt Date: 20050504
  Transmission Date: 20051028
  Serious: Yes (Hospitalization)
  Sender: FDA-Public Use
  Company Number: ATO-05-0153

PATIENT
  Age: 75 Year
  Sex: Male
  Weight: 70.8 kg

DRUGS (2)
  1. TRISENOX [Suspect]
     Indication: MULTIPLE MYELOMA
     Dosage: 18 MG (18 MG, BIW), IVI
     Route: 042
     Dates: start: 20050124
  2. THALOMID [Suspect]
     Indication: MULTIPLE MYELOMA
     Dosage: 50 MG (50 MG, QHS)
     Dates: start: 20050124

REACTIONS (1)
  - DEEP VEIN THROMBOSIS [None]
